FAERS Safety Report 7063105-5 (Version None)
Quarter: 2010Q4

REPORT INFORMATION
  Report Type: 
  Country: None (occurrence: None)
  Receive Date: 20101026
  Receipt Date: 20100413
  Transmission Date: 20110411
  Serious: No
  Sender: FDA-Public Use
  Company Number: US-PFIZER INC-2010046910

PATIENT
  Age: 62 Year
  Sex: Male

DRUGS (2)
  1. LIPITOR [Suspect]
     Dosage: 40 MG, UNK
  2. DIOVAN HCT [Suspect]
     Dosage: 30/12.5

REACTIONS (4)
  - BONE PAIN [None]
  - JOINT INJURY [None]
  - MYALGIA [None]
  - PAIN IN EXTREMITY [None]
